FAERS Safety Report 7089735-2 (Version None)
Quarter: 2010Q4

REPORT INFORMATION
  Report Type: 
  Country: None (occurrence: None)
  Receive Date: 20101108
  Receipt Date: 20101103
  Transmission Date: 20110411
  Serious: Yes (Other)
  Sender: FDA-Public Use
  Company Number: US-PFIZER INC-2009272980

PATIENT
  Sex: Female
  Weight: 76.19 kg

DRUGS (10)
  1. GEODON [Suspect]
     Indication: SLEEP DISORDER
     Dosage: 120 MG, 2X/DAY
     Route: 048
     Dates: start: 20070401
  2. ATIVAN [Concomitant]
     Indication: ANXIETY
     Dosage: 1MG 3X/DAY
     Route: 048
  3. ZOLPIDEM [Concomitant]
     Indication: SLEEP DISORDER
     Dosage: 10 MG, 1X/DAY
     Route: 048
  4. IMIPRAMINE [Concomitant]
     Indication: SLEEP DISORDER
     Dosage: 50 MG, 1X/DAY
     Route: 048
  5. DIAZEPAM [Concomitant]
     Indication: SLEEP DISORDER
     Dosage: 10 MG, 2X/DAY
  6. AMBIEN [Concomitant]
     Indication: SLEEP DISORDER
     Dosage: 10 MG, 1X/DAY
     Route: 048
  7. LORAZEPAM [Concomitant]
     Indication: SLEEP DISORDER
     Dosage: 2 MG, 2X/DAY
  8. LYRICA [Concomitant]
     Indication: PAIN
     Dosage: UNK
  9. TRAMADOL [Concomitant]
     Indication: PAIN
     Dosage: UNK
  10. GABAPENTIN [Concomitant]
     Indication: PAIN
     Dosage: UNK

REACTIONS (18)
  - ACTIVITIES OF DAILY LIVING IMPAIRED [None]
  - CARDIAC DISORDER [None]
  - DECREASED APPETITE [None]
  - DIABETES MELLITUS [None]
  - DRUG INEFFECTIVE [None]
  - DYSPEPSIA [None]
  - DYSPHAGIA [None]
  - EXTRAPYRAMIDAL DISORDER [None]
  - FEELING ABNORMAL [None]
  - INTENTIONAL DRUG MISUSE [None]
  - MALAISE [None]
  - OVERDOSE [None]
  - RESTLESSNESS [None]
  - SOMNOLENCE [None]
  - TREMOR [None]
  - URINARY INCONTINENCE [None]
  - WEIGHT DECREASED [None]
  - WEIGHT INCREASED [None]
